FAERS Safety Report 16972441 (Version 2)
Quarter: 2019Q4

REPORT INFORMATION
  Report Type: Spontaneous
  Country: JP (occurrence: JP)
  Receive Date: 20191029
  Receipt Date: 20191210
  Transmission Date: 20200122
  Serious: Yes (Other)
  Sender: FDA-Public Use
  Company Number: JP-UCBSA-2019033251

PATIENT
  Age: 9 Year
  Sex: Male
  Weight: 39.4 kg

DRUGS (11)
  1. VIMPAT [Suspect]
     Active Substance: LACOSAMIDE
     Indication: EPILEPSY
     Dosage: 50 MILLIGRAM, ONCE DAILY (QD)
     Route: 048
     Dates: start: 20190115, end: 20190610
  2. ESCRE [Concomitant]
     Active Substance: CHLORAL HYDRATE
     Indication: SEDATION
     Dosage: 1000 MILLIGRAM, ONCE DAILY (QD)
     Route: 054
     Dates: start: 20190115, end: 20190115
  3. RISPERIDONE. [Concomitant]
     Active Substance: RISPERIDONE
     Indication: AUTISM SPECTRUM DISORDER
     Dosage: 1 MILLILITER, ONCE DAILY (QD)
     Route: 048
     Dates: start: 20190114, end: 20190118
  4. E KEPPRA [Concomitant]
     Active Substance: LEVETIRACETAM
     Indication: EPILEPSY
     Dosage: 400 MILLIGRAM, 2X/DAY (BID)
     Route: 041
     Dates: start: 20190114, end: 20190115
  5. RISPERIDONE. [Concomitant]
     Active Substance: RISPERIDONE
     Dosage: 1 MILLIGRAM, 2X/DAY (BID)
     Route: 048
     Dates: start: 20190610
  6. GASTER [FAMOTIDINE] [Concomitant]
     Indication: GASTRITIS
     Dosage: 10 MILLIGRAM, 2X/DAY (BID)
     Route: 042
     Dates: start: 20190114, end: 20190115
  7. CEFDITOREN PIVOXIL. [Concomitant]
     Active Substance: CEFDITOREN PIVOXIL
     Indication: BRONCHITIS
     Dosage: 100 MILLIGRAM, 3X/DAY (TID)
     Route: 048
     Dates: start: 20190115, end: 20190117
  8. FAMOTIDINE D EMEC [Concomitant]
     Indication: GASTRITIS
     Dosage: 10 MILLIGRAM, 2X/DAY (BID)
     Route: 048
     Dates: start: 20190115, end: 20190121
  9. ACETAMINOPHEN. [Concomitant]
     Active Substance: ACETAMINOPHEN
     Indication: PYREXIA
     Dosage: 400 MILLIGRAM, ONCE DAILY (QD)
     Route: 054
     Dates: start: 20190114, end: 20190114
  10. CEFAZOLIN NA [Concomitant]
     Active Substance: CEFAZOLIN SODIUM
     Indication: BRONCHITIS
     Dosage: 1 GRAM, 2X/DAY (BID)
     Route: 042
     Dates: start: 20190114, end: 20190115
  11. MIDAZOLAM [Concomitant]
     Active Substance: MIDAZOLAM HYDROCHLORIDE
     Indication: EPILEPSY
     Dosage: 7 MILLIGRAM, ONCE DAILY (QD)
     Route: 042
     Dates: start: 20190114, end: 20190114

REACTIONS (4)
  - Myoclonus [Recovered/Resolved]
  - Tic [Recovered/Resolved]
  - Off label use [Unknown]
  - Blood creatine phosphokinase increased [Not Recovered/Not Resolved]

NARRATIVE: CASE EVENT DATE: 20190115
